FAERS Safety Report 14630359 (Version 1)
Quarter: 2018Q1

REPORT INFORMATION
  Report Type: Spontaneous
  Country: US (occurrence: US)
  Receive Date: 20180313
  Receipt Date: 20180313
  Transmission Date: 20180509
  Serious: Yes (Other)
  Sender: FDA-Public Use
  Company Number: None

PATIENT
  Age: 48 Year
  Sex: Male
  Weight: 56.25 kg

DRUGS (9)
  1. AMBIEN [Concomitant]
     Active Substance: ZOLPIDEM TARTRATE
  2. IBUPROFEN. [Concomitant]
     Active Substance: IBUPROFEN
  3. LYRICA [Concomitant]
     Active Substance: PREGABALIN
  4. OMERPRAZOLE [Concomitant]
     Active Substance: OMEPRAZOLE
  5. KLONOPIN [Concomitant]
     Active Substance: CLONAZEPAM
  6. TYLENOL [Concomitant]
     Active Substance: ACETAMINOPHEN
  7. LINZESS [Concomitant]
     Active Substance: LINACLOTIDE
  8. SUBOXONE [Suspect]
     Active Substance: BUPRENORPHINE HYDROCHLORIDE\NALOXONE HYDROCHLORIDE
     Indication: WITHDRAWAL SYNDROME
     Dosage: QUANTITY:2 SUBLINGUAL FILM;?
     Route: 060
     Dates: start: 20180308, end: 20180313
  9. AMOXICILLIN. [Concomitant]
     Active Substance: AMOXICILLIN

REACTIONS (4)
  - Drug detoxification [None]
  - Wrong strength [None]
  - Drug ineffective [None]
  - Malaise [None]

NARRATIVE: CASE EVENT DATE: 20180310
